FAERS Safety Report 8419581-6 (Version None)
Quarter: 2012Q2

REPORT INFORMATION
  Report Type: 
  Country: None (occurrence: None)
  Receive Date: 20120607
  Receipt Date: 20120529
  Transmission Date: 20120825
  Serious: Yes (Other)
  Sender: FDA-Public Use
  Company Number: US-ASTRAZENECA-2012SE35729

PATIENT
  Age: 63 Year
  Sex: Female

DRUGS (2)
  1. TOPROL-XL [Suspect]
     Dosage: GENERIC
     Route: 048
  2. TOPROL-XL [Suspect]
     Route: 048

REACTIONS (7)
  - HYPERTENSION [None]
  - BACK PAIN [None]
  - MIGRAINE [None]
  - ATRIAL FIBRILLATION [None]
  - BREAST CANCER [None]
  - POOR QUALITY SLEEP [None]
  - DRUG INEFFECTIVE [None]
